FAERS Safety Report 8837015 (Version 1)
Quarter: 2012Q4

REPORT INFORMATION
  Report Type: Spontaneous
  Country: US (occurrence: None)
  Receive Date: 20121011
  Receipt Date: 20121011
  Transmission Date: 20130627
  Serious: Yes (Hospitalization)
  Sender: FDA-Public Use
  Company Number: None

PATIENT
  Sex: Male
  Weight: 45.4 kg

DRUGS (2)
  1. CARBOPLATIN [Suspect]
     Dates: end: 20120803
  2. DOCETAXEL (TAXOTERE) [Suspect]
     Dates: end: 20120803

REACTIONS (8)
  - Diarrhoea [None]
  - Asthenia [None]
  - Pain [None]
  - Thrombocytopenia [None]
  - Hyponatraemia [None]
  - Dehydration [None]
  - Disease progression [None]
  - Small cell carcinoma [None]
